FAERS Safety Report 8965368 (Version 1)
Quarter: 2012Q4

REPORT INFORMATION
  Report Type: 
  Country: GB (occurrence: GB)
  Receive Date: 20121213
  Receipt Date: 20121213
  Transmission Date: 20130627
  Serious: Yes (Life-Threatening)
  Sender: FDA-Public Use
  Company Number: GB-ELI_LILLY_AND_COMPANY-GB201212000209

PATIENT
  Age: 50 Year
  Sex: Female
  Weight: 69.85 kg

DRUGS (5)
  1. CYMBALTA [Suspect]
     Indication: DEPRESSION
     Dosage: UNK
     Dates: start: 201208
  2. CYMBALTA [Suspect]
     Dosage: 30 mg, UNK
     Dates: start: 20121021, end: 20121027
  3. FEMOSTON [Concomitant]
     Dosage: 10 mg, UNK
  4. MULTIVITAMIN [Concomitant]
  5. SOYA LECITHIN [Concomitant]
     Dosage: 1200 mg, UNK

REACTIONS (13)
  - Stevens-Johnson syndrome [Not Recovered/Not Resolved]
  - Blister [Unknown]
  - Malaise [Unknown]
  - Somnolence [Unknown]
  - Rash [Unknown]
  - Arthralgia [Unknown]
  - Pyrexia [Unknown]
  - Heart rate increased [Unknown]
  - Alopecia [Unknown]
  - Fatigue [Unknown]
  - Confusional state [Unknown]
  - Chest pain [Unknown]
  - Vision blurred [Unknown]
